FAERS Safety Report 17802862 (Version 1)
Quarter: 2020Q2

REPORT INFORMATION
  Report Type: Spontaneous
  Country: FR (occurrence: FR)
  Receive Date: 20200519
  Receipt Date: 20200519
  Transmission Date: 20200714
  Serious: Yes (Other)
  Sender: FDA-Public Use
  Company Number: FR-ABBVIE-20K-056-3406655-00

PATIENT
  Age: 27 Year
  Sex: Male
  Weight: 56 kg

DRUGS (1)
  1. HUMIRA [Suspect]
     Active Substance: ADALIMUMAB
     Indication: ANKYLOSING SPONDYLITIS
     Dosage: HUMIRA 40 MG, SOLUTION INJECTABLE EN STYLO PR?REMPLIE
     Route: 058
     Dates: start: 20170609, end: 20200429

REACTIONS (2)
  - Irritability [Unknown]
  - Nocturia [Unknown]

NARRATIVE: CASE EVENT DATE: 20200215
